FAERS Safety Report 9792744 (Version 1)
Quarter: 2014Q1

REPORT INFORMATION
  Report Type: Spontaneous
  Country: US (occurrence: US)
  Receive Date: 20140102
  Receipt Date: 20140102
  Transmission Date: 20141002
  Serious: No
  Sender: FDA-Public Use
  Company Number: US-SA-2013SA105483

PATIENT
  Sex: Female

DRUGS (14)
  1. AUBAGIO [Suspect]
     Route: 048
     Dates: start: 20130925
  2. GABAPENTIN [Concomitant]
  3. VITAMIN D [Concomitant]
  4. OMEPRAZOLE [Concomitant]
  5. CLONAZEPAM [Concomitant]
  6. TOPAMAX [Concomitant]
  7. CYMBALTA [Concomitant]
  8. AMANTADINE [Concomitant]
  9. ESTRADIOL [Concomitant]
  10. TYLENOL [Concomitant]
  11. LEVOTHYROXINE [Concomitant]
  12. SIMVASTATIN [Concomitant]
  13. SUMATRIPTAN [Concomitant]
  14. RANITIDINE [Concomitant]

REACTIONS (1)
  - Diarrhoea [Not Recovered/Not Resolved]
